FAERS Safety Report 4848555-7 (Version None)
Quarter: 2005Q4

REPORT INFORMATION
  Report Type: 
  Country: None (occurrence: None)
  Receive Date: 20051206
  Receipt Date: 20051127
  Transmission Date: 20060501
  Serious: Yes (Other)
  Sender: FDA-Public Use
  Company Number: 2005159960

PATIENT
  Sex: Male
  Weight: 83.9154 kg

DRUGS (1)
  1. SUDAFED 12 HOUR [Suspect]
     Indication: MALAISE
     Dosage: 1 TAB ONCE, ORAL
     Route: 048

REACTIONS (1)
  - DRUG HYPERSENSITIVITY [None]
